FAERS Safety Report 13012947 (Version 10)
Quarter: 2017Q2

REPORT INFORMATION
  Report Type: Spontaneous
  Country: US (occurrence: US)
  Receive Date: 20161209
  Receipt Date: 20170412
  Transmission Date: 20170830
  Serious: Yes (Life-Threatening, Hospitalization, Other)
  Sender: FDA-Public Use
  Company Number: US-VIIV HEALTHCARE LIMITED-US2016GSK181314

PATIENT
  Age: 42 Year
  Sex: Male
  Weight: 91.57 kg

DRUGS (18)
  1. TIVICAY [Suspect]
     Active Substance: DOLUTEGRAVIR SODIUM
     Indication: PRODUCT USED FOR UNKNOWN INDICATION
     Dosage: 10 MG, QD
     Route: 048
     Dates: end: 201402
  2. EPZICOM [Concomitant]
     Active Substance: ABACAVIR SULFATE\LAMIVUDINE
  3. PRINIVIL [Concomitant]
     Active Substance: LISINOPRIL
  4. LISINOPRIL. [Concomitant]
     Active Substance: LISINOPRIL
  5. SYMBICORT [Suspect]
     Active Substance: BUDESONIDE\FORMOTEROL FUMARATE DIHYDRATE
     Dosage: 2 PUFF(S), BID
     Route: 055
  6. FISH OIL [Concomitant]
     Active Substance: FISH OIL
  7. VENTOLIN HFA [Concomitant]
     Active Substance: ALBUTEROL SULFATE
  8. LANTUS SOLOSTAR [Concomitant]
     Active Substance: INSULIN GLARGINE
  9. BUDESONIDE + FORMOTEROL FUMARATE [Suspect]
     Active Substance: BUDESONIDE\FORMOTEROL FUMARATE
     Dosage: 2 PUFF(S), BID
     Route: 055
  10. LYRICA [Suspect]
     Active Substance: PREGABALIN
  11. DEXILANT [Concomitant]
     Active Substance: DEXLANSOPRAZOLE
  12. NOVOLOG [Concomitant]
     Active Substance: INSULIN ASPART
  13. PRAVACHOL [Concomitant]
     Active Substance: PRAVASTATIN SODIUM
  14. TIVICAY [Suspect]
     Active Substance: DOLUTEGRAVIR SODIUM
     Dosage: 50 MG, QD
     Route: 048
  15. PREGABALIN. [Suspect]
     Active Substance: PREGABALIN
  16. PROVENTIL HFA [Concomitant]
     Active Substance: ALBUTEROL SULFATE
  17. ZESTRIL [Concomitant]
     Active Substance: LISINOPRIL
  18. OCEAN SALINE NASAL SPRAY [Concomitant]
     Active Substance: SODIUM CHLORIDE

REACTIONS (25)
  - Diabetes mellitus inadequate control [Unknown]
  - Polyuria [Unknown]
  - Renal failure [Unknown]
  - Proteinuria [Unknown]
  - Fatigue [Recovering/Resolving]
  - Asthma [Unknown]
  - Blood glucose increased [Recovering/Resolving]
  - Diabetes mellitus [Unknown]
  - Pain [Recovering/Resolving]
  - Arthritis [Unknown]
  - Polydipsia [Unknown]
  - Blindness [Unknown]
  - Drug hypersensitivity [Unknown]
  - Diabetic ketoacidosis [Unknown]
  - Dry mouth [Unknown]
  - Visual impairment [Unknown]
  - Glucose tolerance impaired [Recovering/Resolving]
  - Rhinitis allergic [Unknown]
  - Dizziness [Unknown]
  - Weight decreased [Unknown]
  - Hyperglycaemia [Recovering/Resolving]
  - Vision blurred [Unknown]
  - Paraesthesia [Unknown]
  - Asthenia [Unknown]
  - Hyperglycaemic hyperosmolar nonketotic syndrome [Unknown]

NARRATIVE: CASE EVENT DATE: 20130829
